FAERS Safety Report 10151952 (Version 2)
Quarter: 2014Q2

REPORT INFORMATION
  Report Type: Spontaneous
  Country: US (occurrence: None)
  Receive Date: 20140501
  Receipt Date: 20140507
  Transmission Date: 20141212
  Serious: Yes (Other)
  Sender: FDA-Public Use
  Company Number: JPI-P-026829

PATIENT
  Age: 31 Year
  Sex: Female

DRUGS (2)
  1. XYREM (SOLUTION OXYBATE) ORAL SOLUTION, 500MG/ML [Suspect]
     Indication: NARCOLEPSY
     Route: 048
     Dates: start: 20120726
  2. XYREM (SOLUTION OXYBATE) ORAL SOLUTION, 500MG/ML [Suspect]
     Indication: CATAPLEXY
     Route: 048
     Dates: start: 20120726

REACTIONS (7)
  - Headache [None]
  - Urinary incontinence [None]
  - Abortion spontaneous [None]
  - Polycystic ovaries [None]
  - Medical device complication [None]
  - Exposure during pregnancy [None]
  - Maternal drugs affecting foetus [None]
